FAERS Safety Report 16053838 (Version 1)
Quarter: 2019Q1

REPORT INFORMATION
  Report Type: Spontaneous
  Country: US (occurrence: US)
  Receive Date: 20190308
  Receipt Date: 20190308
  Transmission Date: 20190418
  Serious: Yes (Hospitalization, Other)
  Sender: FDA-Public Use
  Company Number: US-BAYER-2019-048373

PATIENT
  Age: 71 Year
  Sex: Male

DRUGS (5)
  1. IPILIMUMAB [Concomitant]
     Active Substance: IPILIMUMAB
     Dosage: EVERY 3 WEEKS
  2. ONDANSETRON [Concomitant]
     Active Substance: ONDANSETRON
  3. LOPERAMIDE [Concomitant]
     Active Substance: LOPERAMIDE
  4. ACETYLSALICYLIC ACID (CARDIO) [Suspect]
     Active Substance: ASPIRIN
     Dosage: 975 MG, BID
  5. PEMBROLIZUMAB. [Concomitant]
     Active Substance: PEMBROLIZUMAB
     Dosage: EVERY 3 WEEKS

REACTIONS (1)
  - Colitis [None]
